FAERS Safety Report 5529925-0 (Version None)
Quarter: 2007Q4

REPORT INFORMATION
  Report Type: 
  Country: None (occurrence: None)
  Receive Date: 20071129
  Receipt Date: 20071119
  Transmission Date: 20080405
  Serious: No
  Sender: FDA-Public Use
  Company Number: US-BOEHRINGER INGELHEIM PHARMACEUTICALS, INC.-2007-BP-24819BP

PATIENT
  Age: 72 Year
  Sex: Male

DRUGS (6)
  1. SPIRIVA [Suspect]
     Indication: CHRONIC OBSTRUCTIVE PULMONARY DISEASE
     Route: 055
     Dates: start: 20070801
  2. FLOVENT [Suspect]
     Dates: start: 20070801, end: 20070807
  3. PREDNISONE TAB [Concomitant]
     Dates: start: 20070401
  4. ATENOLOL [Concomitant]
  5. QUINAPRIL HCL [Concomitant]
  6. HYDROCHLOROTHIAZIDE [Concomitant]

REACTIONS (4)
  - DIZZINESS [None]
  - NOCTURIA [None]
  - TESTICULAR SWELLING [None]
  - URINARY HESITATION [None]
